FAERS Safety Report 6527912-7 (Version None)
Quarter: 2010Q1

REPORT INFORMATION
  Report Type: 
  Country: None (occurrence: None)
  Receive Date: 20100106
  Receipt Date: 20091228
  Transmission Date: 20100710
  Serious: Yes (Death, Hospitalization)
  Sender: FDA-Public Use
  Company Number: FR-CELGENEUS-056-50794-10010090

PATIENT
  Sex: Female
  Weight: 53 kg

DRUGS (15)
  1. VIDAZA [Suspect]
     Indication: DRUG USE FOR UNKNOWN INDICATION
     Dates: start: 20090331, end: 20090531
  2. ANIDULAFUNGIN/PLACEBO [Suspect]
     Route: 051
     Dates: start: 20090630, end: 20090630
  3. ANIDULAFUNGIN/PLACEBO [Suspect]
     Route: 051
     Dates: start: 20090701, end: 20090713
  4. VORICONAZOLE [Suspect]
     Route: 051
     Dates: start: 20090630, end: 20090701
  5. VORICONAZOLE [Suspect]
     Route: 051
     Dates: start: 20090702, end: 20090707
  6. VORICONAZOLE [Suspect]
     Route: 048
     Dates: start: 20090707, end: 20090709
  7. VORICONAZOLE [Suspect]
     Route: 048
     Dates: start: 20090710, end: 20090828
  8. CORTANCYL [Concomitant]
     Indication: DRUG USE FOR UNKNOWN INDICATION
     Route: 065
     Dates: start: 20090714
  9. POSACONAZOLE [Concomitant]
     Indication: DRUG USE FOR UNKNOWN INDICATION
     Route: 065
     Dates: start: 20090829
  10. WELLVONE [Concomitant]
     Indication: DRUG USE FOR UNKNOWN INDICATION
     Route: 065
     Dates: start: 20090730
  11. ZELITREX [Concomitant]
     Indication: DRUG USE FOR UNKNOWN INDICATION
     Route: 065
     Dates: start: 20090730
  12. OXYNORM [Concomitant]
     Indication: DRUG USE FOR UNKNOWN INDICATION
     Route: 065
     Dates: start: 20090630
  13. RIVOTRIL [Concomitant]
     Indication: DRUG USE FOR UNKNOWN INDICATION
     Route: 065
     Dates: start: 20090905
  14. EXACYL [Concomitant]
     Indication: DRUG USE FOR UNKNOWN INDICATION
     Route: 065
     Dates: start: 20090907
  15. MOPRAL [Concomitant]
     Indication: DRUG USE FOR UNKNOWN INDICATION
     Route: 065
     Dates: start: 20090904

REACTIONS (2)
  - ACUTE MYELOID LEUKAEMIA [None]
  - DISEASE PROGRESSION [None]
